FAERS Safety Report 16918850 (Version 1)
Quarter: 2019Q4

REPORT INFORMATION
  Report Type: Spontaneous
  Country: US (occurrence: US)
  Receive Date: 20191014
  Receipt Date: 20191014
  Transmission Date: 20200122
  Serious: Yes (Life-Threatening, Hospitalization)
  Sender: FDA-Public Use
  Company Number: None

PATIENT
  Age: 40 Year
  Sex: Female
  Weight: 69.3 kg

DRUGS (8)
  1. NUVARING [Concomitant]
     Active Substance: ETHINYL ESTRADIOL\ETONOGESTREL
  2. NUVARING [Suspect]
     Active Substance: ETHINYL ESTRADIOL\ETONOGESTREL
     Indication: CONTRACEPTION
     Dosage: ?          OTHER FREQUENCY:EVERY 21 DAYS;?
     Route: 067
  3. RIBOFLAVIN [Concomitant]
     Active Substance: RIBOFLAVIN
  4. MAGNESIUM [Concomitant]
     Active Substance: MAGNESIUM
  5. COQ10 [Concomitant]
     Active Substance: UBIDECARENONE
  6. SPIRONOLACTONE. [Concomitant]
     Active Substance: SPIRONOLACTONE
  7. ZOMIG NASAP SPRAY [Concomitant]
  8. AIMOVIG [Concomitant]
     Active Substance: ERENUMAB-AOOE

REACTIONS (3)
  - Cardiac failure [None]
  - Deep vein thrombosis [None]
  - Pulmonary embolism [None]

NARRATIVE: CASE EVENT DATE: 20181218
